FAERS Safety Report 13030952 (Version 1)
Quarter: 2016Q4

REPORT INFORMATION
  Report Type: Spontaneous
  Country: US (occurrence: US)
  Receive Date: 20161215
  Receipt Date: 20161215
  Transmission Date: 20170207
  Serious: No
  Sender: FDA-Public Use
  Company Number: US-NOVOPROD-507769

PATIENT
  Age: 56 Year
  Sex: Female
  Weight: 106.12 kg

DRUGS (1)
  1. NOVOLIN 70/30 [Suspect]
     Active Substance: INSULIN HUMAN
     Indication: TYPE 2 DIABETES MELLITUS
     Dosage: 265 U, QD (90 UNITS IN AM 90 UNITS IN AFTERNOON AND 85 UNITS IN PM)
     Route: 058
     Dates: start: 2012, end: 2016

REACTIONS (4)
  - Glycosylated haemoglobin increased [Unknown]
  - Weight increased [Recovered/Resolved]
  - Hunger [Recovered/Resolved]
  - Blood glucose increased [Recovered/Resolved]

NARRATIVE: CASE EVENT DATE: 2012
